FAERS Safety Report 5161787-6 (Version None)
Quarter: 2006Q4

REPORT INFORMATION
  Report Type: 
  Country: None (occurrence: None)
  Receive Date: 20061130
  Receipt Date: 20061120
  Transmission Date: 20070319
  Serious: Yes (Hospitalization)
  Sender: FDA-Public Use
  Company Number: DE-AMGEN-UK200924

PATIENT
  Age: 80 Year
  Sex: Female

DRUGS (5)
  1. ARANESP [Suspect]
     Indication: RENAL FAILURE CHRONIC
     Route: 065
     Dates: start: 20060801, end: 20061001
  2. FUROSEMIDE [Concomitant]
     Route: 065
  3. TRIAMTEREN [Concomitant]
     Route: 065
  4. MARCUMAR [Concomitant]
     Route: 065
  5. LISINOPRIL AND HYDROCHLOROTHIAZIDE [Concomitant]
     Route: 065

REACTIONS (7)
  - ABDOMINAL PAIN [None]
  - DIARRHOEA [None]
  - GASTRITIS [None]
  - GASTROINTESTINAL INFLAMMATION [None]
  - OESOPHAGITIS [None]
  - STOMATITIS [None]
  - VIRAL INFECTION [None]
